FAERS Safety Report 24458477 (Version 1)
Quarter: 2024Q4

REPORT INFORMATION
  Report Type: Report from Study
  Country: US (occurrence: US)
  Receive Date: 20241018
  Receipt Date: 20241018
  Transmission Date: 20250115
  Serious: No
  Sender: ROCHE
  Company Number: US-ROCHE-3518716

PATIENT
  Age: 57 Year
  Sex: Male

DRUGS (1)
  1. RITUXAN [Suspect]
     Active Substance: RITUXIMAB
     Indication: Extranodal marginal zone B-cell lymphoma (MALT type)
     Dosage: INFUSE 750MG INTRAVENOUSLY EVERY 28 DAY(S), VIAL
     Route: 042

REACTIONS (2)
  - Product dispensing error [Unknown]
  - No adverse event [Unknown]
